FAERS Safety Report 25146707 (Version 1)
Quarter: 2025Q2

REPORT INFORMATION
  Report Type: Spontaneous
  Country: CN (occurrence: CN)
  Receive Date: 20250401
  Receipt Date: 20250401
  Transmission Date: 20250716
  Serious: Yes (Other)
  Sender: BAXTER
  Company Number: None

PATIENT
  Age: 56 Year
  Sex: Female
  Weight: 55 kg

DRUGS (5)
  1. CYCLOPHOSPHAMIDE [Suspect]
     Active Substance: CYCLOPHOSPHAMIDE
     Indication: Breast cancer female
     Route: 042
     Dates: start: 20241130, end: 20241130
  2. SODIUM CHLORIDE [Suspect]
     Active Substance: SODIUM CHLORIDE
     Indication: Medication dilution
     Route: 042
     Dates: start: 20241130, end: 20241130
  3. SODIUM CHLORIDE [Suspect]
     Active Substance: SODIUM CHLORIDE
     Route: 041
     Dates: start: 20241130, end: 20241130
  4. TAXOTERE [Suspect]
     Active Substance: DOCETAXEL
     Indication: Breast cancer female
     Route: 041
     Dates: start: 20241130, end: 20241130
  5. PEGYLATED GRANULOCYTE COLONY-STIMULATING FACTOR [Suspect]
     Active Substance: PEGYLATED GRANULOCYTE COLONY-STIMULATING FACTOR
     Route: 058

REACTIONS (2)
  - Neutrophil count decreased [Recovering/Resolving]
  - White blood cell count decreased [Recovering/Resolving]

NARRATIVE: CASE EVENT DATE: 20241209
